FAERS Safety Report 5659687-8 (Version None)
Quarter: 2008Q1

REPORT INFORMATION
  Report Type: 
  Country: None (occurrence: None)
  Receive Date: 20080311
  Receipt Date: 20080226
  Transmission Date: 20080703
  Serious: Yes (Hospitalization)
  Sender: FDA-Public Use
  Company Number: SE-AMGEN-UK264018

PATIENT
  Sex: Female
  Weight: 60 kg

DRUGS (7)
  1. NEULASTA [Suspect]
     Indication: CHEMOTHERAPY
     Route: 058
     Dates: start: 20071031, end: 20071031
  2. SUNITINIB MALATE [Concomitant]
     Route: 048
     Dates: start: 20071010
  3. DOCETAXEL [Concomitant]
     Dates: start: 20071009
  4. ACETAMINOPHEN [Concomitant]
     Route: 048
     Dates: start: 20071021, end: 20071025
  5. BETAMETHASONE [Concomitant]
  6. CIPROFLOXACIN [Concomitant]
     Route: 048
     Dates: start: 20071023, end: 20071031
  7. OMEPRAZOLE [Concomitant]
     Route: 048
     Dates: start: 20071026

REACTIONS (1)
  - BONE PAIN [None]
